FAERS Safety Report 11875663 (Version 2)
Quarter: 2016Q1

REPORT INFORMATION
  Report Type: Spontaneous
  Country: FR (occurrence: FR)
  Receive Date: 20151229
  Receipt Date: 20160107
  Transmission Date: 20160526
  Serious: Yes (Death, Hospitalization)
  Sender: FDA-Public Use
  Company Number: FR-SA-2015SA218299

PATIENT
  Age: 75 Year
  Sex: Male

DRUGS (14)
  1. PANCREATIN [Concomitant]
     Active Substance: PANCRELIPASE
  2. COLECALCIFEROL [Concomitant]
     Active Substance: CHOLECALCIFEROL
  3. HEPARIN [Concomitant]
     Active Substance: HEPARIN SODIUM
     Dates: start: 20151008, end: 20151021
  4. PREVISCAN [Concomitant]
     Active Substance: FLUINDIONE
     Indication: PORTAL VEIN THROMBOSIS
     Dates: start: 20151020, end: 20151022
  5. PANTOPRAZOLE [Concomitant]
     Active Substance: PANTOPRAZOLE SODIUM
  6. ZOLPIDEM [Concomitant]
     Active Substance: ZOLPIDEM\ZOLPIDEM TARTRATE
  7. COLCHICINE. [Concomitant]
     Active Substance: COLCHICINE
  8. VITAMIN B12 [Concomitant]
     Active Substance: CYANOCOBALAMIN
  9. CALCIPARINE [Concomitant]
     Active Substance: HEPARIN CALCIUM
     Dates: start: 20151022, end: 20151025
  10. LOVENOX [Suspect]
     Active Substance: ENOXAPARIN SODIUM
     Indication: PORTAL VEIN THROMBOSIS
     Route: 058
     Dates: start: 20151031, end: 20151117
  11. PREVISCAN [Concomitant]
     Active Substance: FLUINDIONE
     Indication: PORTAL VEIN THROMBOSIS
     Dosage: DIVIDABLE TABLET, 20 MG
     Route: 048
     Dates: start: 20151028, end: 20151105
  12. SOTALOL. [Concomitant]
     Active Substance: SOTALOL
  13. ALLOPURINOL. [Concomitant]
     Active Substance: ALLOPURINOL
  14. ALFUZOSIN [Concomitant]
     Active Substance: ALFUZOSIN

REACTIONS (3)
  - Anaemia [Recovering/Resolving]
  - Haematoma [Fatal]
  - Renal failure [Recovering/Resolving]

NARRATIVE: CASE EVENT DATE: 20151117
